FAERS Safety Report 16263862 (Version 4)
Quarter: 2019Q2

REPORT INFORMATION
  Report Type: Spontaneous
  Country: US (occurrence: US)
  Receive Date: 20190502
  Receipt Date: 20190611
  Transmission Date: 20190711
  Serious: No
  Sender: FDA-Public Use
  Company Number: US-009507513-1905USA000146

PATIENT
  Age: 16 Year
  Sex: Male

DRUGS (2)
  1. ASMANEX [Suspect]
     Active Substance: MOMETASONE FUROATE
     Indication: HYPERSENSITIVITY
     Dosage: 1 PUFF, ONCE DAILY AT NIGHT
     Route: 055
     Dates: start: 20190424
  2. FLUTICASONE. [Concomitant]
     Active Substance: FLUTICASONE

REACTIONS (6)
  - Cough [Not Recovered/Not Resolved]
  - Product dose omission [Unknown]
  - Product use in unapproved indication [Unknown]
  - Poor quality device used [Unknown]
  - Malaise [Not Recovered/Not Resolved]
  - Product quality issue [Not Recovered/Not Resolved]

NARRATIVE: CASE EVENT DATE: 20190424
